FAERS Safety Report 4987355-4 (Version None)
Quarter: 2006Q2

REPORT INFORMATION
  Report Type: 
  Country: None (occurrence: None)
  Receive Date: 20060424
  Receipt Date: 20060410
  Transmission Date: 20061013
  Serious: Yes (Other)
  Sender: FDA-Public Use
  Company Number: 2006-141049-NL

PATIENT
  Sex: Male

DRUGS (1)
  1. REMERON [Suspect]
     Dosage: 15 MG ORAL
     Route: 048
     Dates: start: 20051001

REACTIONS (4)
  - ABASIA [None]
  - HYPOAESTHESIA [None]
  - NEUROPATHY PERIPHERAL [None]
  - PARAESTHESIA [None]
